FAERS Safety Report 6970937-8 (Version None)
Quarter: 2010Q3

REPORT INFORMATION
  Report Type: 
  Country: None (occurrence: None)
  Receive Date: 20100908
  Receipt Date: 20100902
  Transmission Date: 20110219
  Serious: Yes (Death)
  Sender: FDA-Public Use
  Company Number: US-GILEAD-2010-0031633

PATIENT
  Sex: Male
  Weight: 83.99 kg

DRUGS (19)
  1. LETAIRIS [Suspect]
     Indication: PULMONARY ARTERIAL HYPERTENSION
     Route: 048
     Dates: start: 20091007
  2. ASPIRIN [Concomitant]
  3. FUROSEMIDE [Concomitant]
  4. IPRATROPIUM BROMIDE [Concomitant]
  5. ALLEGRA [Concomitant]
  6. FINASTERIDE [Concomitant]
  7. DIGOXIN [Concomitant]
  8. SIMVASTATIN [Concomitant]
  9. FEXOFENADINE HCL [Concomitant]
  10. LIPITOR [Concomitant]
  11. GLYBURIDE [Concomitant]
  12. JANUVIA [Concomitant]
  13. PREVACID [Concomitant]
  14. ALBUTEROL [Concomitant]
  15. FLOMAX [Concomitant]
  16. LEVOXYL [Concomitant]
  17. ZETIA [Concomitant]
  18. FISH OIL [Concomitant]
  19. POTASSIUM CHLORIDE [Concomitant]

REACTIONS (1)
  - DEATH [None]
